FAERS Safety Report 9774920 (Version 1)
Quarter: 2013Q4

REPORT INFORMATION
  Report Type: Spontaneous
  Country: US (occurrence: US)
  Receive Date: 20131220
  Receipt Date: 20131220
  Transmission Date: 20140711
  Serious: Yes (Hospitalization)
  Sender: FDA-Public Use
  Company Number: US-SA-2013SA133003

PATIENT
  Age: 86 Year
  Sex: Male

DRUGS (3)
  1. PLAVIX [Suspect]
     Route: 065
  2. ASPIRIN [Suspect]
     Route: 065
  3. ELIQUIS [Suspect]
     Route: 065

REACTIONS (2)
  - Atrial fibrillation [Unknown]
  - Haematuria [Unknown]
